FAERS Safety Report 11178861 (Version 2)
Quarter: 2016Q3

REPORT INFORMATION
  Report Type: Spontaneous
  Country: CN (occurrence: CN)
  Receive Date: 20150610
  Receipt Date: 20160811
  Transmission Date: 20161109
  Serious: Yes (Death)
  Sender: FDA-Public Use
  Company Number: CN-PFIZER INC-2015191784

PATIENT
  Age: 47 Year
  Sex: Female
  Weight: 37 kg

DRUGS (15)
  1. TRAMADOL. [Suspect]
     Active Substance: TRAMADOL
     Dosage: (20 MG BOLUS DOSE AT A LOCKOUT INTERVAL OF 30 MIN)
     Route: 040
  2. MIDAZOLAM [Concomitant]
     Active Substance: MIDAZOLAM\MIDAZOLAM HYDROCHLORIDE
     Indication: GENERAL ANAESTHESIA
     Dosage: 2 MG, UNK
  3. SUCCINYLCHOLINE [Concomitant]
     Active Substance: SUCCINYLCHOLINE
     Dosage: 100 MG, UNK
  4. CEFOTIAM [Concomitant]
     Active Substance: CEFOTIAM
     Dosage: 2 G, UNK
     Route: 042
  5. PANTOPRAZOLE [Concomitant]
     Active Substance: PANTOPRAZOLE SODIUM
     Dosage: 40 MG, UNK
     Route: 042
  6. ETOMIDATE. [Concomitant]
     Active Substance: ETOMIDATE
     Indication: GENERAL ANAESTHESIA
     Dosage: 20 MG, UNK
  7. CISATRACURIUM. [Concomitant]
     Active Substance: CISATRACURIUM
     Dosage: 8 MG, UNK
     Route: 042
  8. PROPOFOL. [Concomitant]
     Active Substance: PROPOFOL
     Dosage: 200 MG, UNK
     Route: 042
  9. NEOSTIGMINE [Concomitant]
     Active Substance: NEOSTIGMINE
     Dosage: 1 MG, UNK
  10. TRAMADOL. [Suspect]
     Active Substance: TRAMADOL
     Dosage: 500 MG, (TOTAL 24 HOURS PCA DOSE, BASAL RATE OF 10 MG/HOUR)
     Route: 042
  11. ATROPINE. [Concomitant]
     Active Substance: ATROPINE
     Dosage: 0.5 MG, UNK
  12. CLINDAMYCIN PHOSPHATE. [Suspect]
     Active Substance: CLINDAMYCIN PHOSPHATE
     Dosage: 1.2 G IN 250 ML 0.9% SODIUM CHLORIDE SOLUTION
     Route: 042
  13. FENTANYL. [Concomitant]
     Active Substance: FENTANYL
     Indication: GENERAL ANAESTHESIA
     Dosage: 150 ?G, UNK
  14. NITROUS OXIDE W/OXYGEN [Concomitant]
     Active Substance: NITROUS OXIDE\OXYGEN
  15. SEVOFLURANE. [Concomitant]
     Active Substance: SEVOFLURANE

REACTIONS (3)
  - Drug administration error [Fatal]
  - Respiratory depression [Fatal]
  - Cardiac arrest [Fatal]
